APPROVED DRUG PRODUCT: CARISOPRODOL
Active Ingredient: CARISOPRODOL
Strength: 350MG
Dosage Form/Route: TABLET;ORAL
Application: A040421 | Product #001
Applicant: ABLE LABORATORIES INC
Approved: Jun 21, 2001 | RLD: No | RS: No | Type: DISCN